FAERS Safety Report 4874588-0 (Version None)
Quarter: 2006Q1

REPORT INFORMATION
  Report Type: 
  Country: None (occurrence: None)
  Receive Date: 20060106
  Receipt Date: 20051213
  Transmission Date: 20060701
  Serious: Yes (Hospitalization, Other)
  Sender: FDA-Public Use
  Company Number: US-MERCK-0512USA02129

PATIENT
  Age: 57 Year
  Sex: Male
  Weight: 89 kg

DRUGS (1)
  1. VIOXX [Suspect]
     Route: 048

REACTIONS (7)
  - CORONARY ARTERY DISEASE [None]
  - DIFFICULTY IN WALKING [None]
  - EMOTIONAL DISORDER [None]
  - JOINT INJURY [None]
  - LIMB INJURY [None]
  - MYOCARDIAL INFARCTION [None]
  - VASCULAR OCCLUSION [None]
